FAERS Safety Report 6376376-5 (Version None)
Quarter: 2009Q3

REPORT INFORMATION
  Report Type: 
  Country: None (occurrence: None)
  Receive Date: 20090925
  Receipt Date: 20090916
  Transmission Date: 20100115
  Serious: Yes (Hospitalization)
  Sender: FDA-Public Use
  Company Number: US-WYE-H11028109

PATIENT
  Sex: Female
  Weight: 75 kg

DRUGS (13)
  1. PRISTIQ [Suspect]
     Indication: DEPRESSION
     Route: 048
  2. PRISTIQ [Interacting]
     Route: 048
     Dates: end: 20090901
  3. LIPITOR [Concomitant]
     Dosage: UNKNOWN
  4. COLACE [Concomitant]
     Dosage: UNKNOWN
  5. INSULIN [Concomitant]
     Dosage: UNKNOWN
  6. FIORINAL [Interacting]
     Dosage: UNKNOWN
     Route: 048
     Dates: end: 20090901
  7. TOPROL-XL [Concomitant]
     Dosage: UNKNOWN
  8. PROTONIX [Concomitant]
     Dosage: UNKNOWN
  9. ACTOS [Concomitant]
     Dosage: UNKNOWN
  10. JANUVIA [Concomitant]
     Dosage: UNKNOWN
  11. ACETYLSALICYLIC ACID/CAFFEINE/PARACETAMOL [Interacting]
     Dosage: UNKNOWN
     Route: 048
     Dates: end: 20090901
  12. PLAVIX [Interacting]
     Dosage: UNKNOWN
     Dates: end: 20090901
  13. COZAAR [Concomitant]
     Dosage: UNKNOWN

REACTIONS (6)
  - CONTUSION [None]
  - DRUG INTERACTION [None]
  - ECCHYMOSIS [None]
  - HEADACHE [None]
  - PLATELET COUNT DECREASED [None]
  - TRANSIENT ISCHAEMIC ATTACK [None]
